FAERS Safety Report 6497628-4 (Version None)
Quarter: 2009Q4

REPORT INFORMATION
  Report Type: 
  Country: None (occurrence: None)
  Receive Date: 20091125
  Receipt Date: 20090305
  Transmission Date: 20100525
  Serious: Yes (Other)
  Sender: FDA-Public Use
  Company Number: 2009BH003744

PATIENT
  Age: 47 Year
  Sex: Male

DRUGS (18)
  1. DIANEAL [Suspect]
     Indication: PERITONEAL DIALYSIS
     Dosage: IP
     Route: 033
  2. DIANEAL [Suspect]
     Indication: PERITONEAL DIALYSIS
     Dosage: IP
     Route: 033
  3. XANAX [Concomitant]
  4. NEXIUM [Concomitant]
  5. LANTUS [Concomitant]
  6. FOSRENOL [Concomitant]
  7. EPOGEN [Concomitant]
  8. MICRO-K [Concomitant]
  9. GLYBURIDE [Concomitant]
  10. ZANTAC [Concomitant]
  11. VITAMIN C [Concomitant]
  12. INVIRASE [Concomitant]
  13. ZIAGEN [Concomitant]
  14. NOVOLOG [Concomitant]
  15. TOPROL-XL [Concomitant]
  16. VISTARIL [Concomitant]
  17. EPIVIR [Concomitant]
  18. VIREAD [Concomitant]

REACTIONS (3)
  - NAUSEA [None]
  - PERITONEAL DIALYSIS COMPLICATION [None]
  - PERITONITIS [None]
